FAERS Safety Report 18058864 (Version 1)
Quarter: 2020Q3

REPORT INFORMATION
  Report Type: Spontaneous
  Country: US (occurrence: US)
  Receive Date: 20200722
  Receipt Date: 20200722
  Transmission Date: 20201103
  Serious: Yes (Other)
  Sender: FDA-Public Use
  Company Number: None

PATIENT
  Age: 71 Year
  Sex: Male
  Weight: 83.25 kg

DRUGS (13)
  1. DIPHENHYDRAMINE. [Concomitant]
     Active Substance: DIPHENHYDRAMINE
  2. ACYCLOVIR. [Concomitant]
     Active Substance: ACYCLOVIR
  3. ZYRTEC [Concomitant]
     Active Substance: CETIRIZINE HYDROCHLORIDE
  4. CALCITONIN [Concomitant]
     Active Substance: CALCITONIN
  5. METOPROLOL. [Concomitant]
     Active Substance: METOPROLOL
  6. RITUXAN [Suspect]
     Active Substance: RITUXIMAB
     Indication: CHRONIC LYMPHOCYTIC LEUKAEMIA
     Dosage: ?          OTHER FREQUENCY:EVERY 28 DAYS;?
     Route: 042
     Dates: start: 20200714
  7. XGEVA [Concomitant]
     Active Substance: DENOSUMAB
  8. LISINOPRIL. [Concomitant]
     Active Substance: LISINOPRIL
  9. NORVASC [Concomitant]
     Active Substance: AMLODIPINE BESYLATE
  10. ACETAMINOPHEN. [Concomitant]
     Active Substance: ACETAMINOPHEN
  11. COLACE [Concomitant]
     Active Substance: DOCUSATE SODIUM
  12. VENCLEXTA [Concomitant]
     Active Substance: VENETOCLAX
  13. FAMOTIDINE. [Concomitant]
     Active Substance: FAMOTIDINE

REACTIONS (1)
  - Neutropenia [None]

NARRATIVE: CASE EVENT DATE: 20200722
